FAERS Safety Report 12807851 (Version 1)
Quarter: 2016Q4

REPORT INFORMATION
  Report Type: Spontaneous
  Country: US (occurrence: US)
  Receive Date: 20161004
  Receipt Date: 20161004
  Transmission Date: 20170207
  Serious: No
  Sender: FDA-Public Use
  Company Number: US-AMGEN-USASP2016097650

PATIENT
  Sex: Female

DRUGS (6)
  1. IBRANCE [Suspect]
     Active Substance: PALBOCICLIB
     Indication: METASTASES TO BREAST
  2. IBRANCE [Suspect]
     Active Substance: PALBOCICLIB
     Indication: METASTASIS
     Dosage: 125 MG, UNK
     Route: 065
     Dates: start: 201503
  3. FEMARA [Concomitant]
     Active Substance: LETROZOLE
     Indication: METASTASIS
  4. XGEVA [Suspect]
     Active Substance: DENOSUMAB
     Indication: METASTASIS
     Dosage: UNK
     Route: 065
     Dates: start: 201503
  5. XGEVA [Suspect]
     Active Substance: DENOSUMAB
     Indication: METASTASES TO BREAST
  6. FEMARA [Concomitant]
     Active Substance: LETROZOLE
     Indication: METASTASES TO BREAST

REACTIONS (2)
  - Adverse event [Unknown]
  - Blood count abnormal [Unknown]
